FAERS Safety Report 15109591 (Version 1)
Quarter: 2018Q3

REPORT INFORMATION
  Report Type: Spontaneous
  Country: GB (occurrence: GB)
  Receive Date: 20180705
  Receipt Date: 20180705
  Transmission Date: 20181010
  Serious: Yes (Life-Threatening, Hospitalization, Other)
  Sender: FDA-Public Use
  Company Number: GB-DRREDDYS-GER/UKI/18/0101132

PATIENT
  Age: 46 Year
  Sex: Female
  Weight: 76.2 kg

DRUGS (2)
  1. OXYCODONE [Concomitant]
     Active Substance: OXYCODONE
     Indication: PAIN
  2. DULOXETINE. [Suspect]
     Active Substance: DULOXETINE
     Indication: NEURALGIA
     Dates: start: 201702, end: 201710

REACTIONS (3)
  - Suicidal ideation [Not Recovered/Not Resolved]
  - Hypomania [Not Recovered/Not Resolved]
  - Agitation [Not Recovered/Not Resolved]
